FAERS Safety Report 9541893 (Version 1)
Quarter: 2013Q2

REPORT INFORMATION
  Report Type: Spontaneous
  Country: US (occurrence: None)
  Receive Date: 20130524
  Receipt Date: 20130524
  Transmission Date: 20140414
  Serious: Yes (Other)
  Sender: FDA-Public Use
  Company Number: PHEH2013US001402

PATIENT
  Age: 66 Year
  Sex: Female
  Weight: 68 kg

DRUGS (1)
  1. GILENYA [Suspect]
     Indication: MULTIPLE SCLEROSIS
     Route: 048
     Dates: start: 20130103

REACTIONS (8)
  - Rash erythematous [None]
  - Chills [None]
  - Pain [None]
  - Nausea [None]
  - Blood pressure increased [None]
  - Headache [None]
  - Dizziness [None]
  - Diarrhoea [None]
